FAERS Safety Report 12307141 (Version 1)
Quarter: 2016Q2

REPORT INFORMATION
  Report Type: Spontaneous
  Country: US (occurrence: US)
  Receive Date: 20160426
  Receipt Date: 20160426
  Transmission Date: 20160815
  Serious: No
  Sender: FDA-Public Use
  Company Number: US-ALKERMES INC.-ALK-2015-001709

PATIENT

DRUGS (1)
  1. VIVITROL [Suspect]
     Active Substance: NALTREXONE
     Indication: DRUG DEPENDENCE
     Dosage: 380 MG, QMO
     Route: 030
     Dates: start: 2010, end: 2011

REACTIONS (14)
  - Drug dependence [Not Recovered/Not Resolved]
  - Visual impairment [Recovered/Resolved]
  - Dry skin [Recovered/Resolved]
  - Vomiting [Recovered/Resolved]
  - Skin discolouration [Recovered/Resolved]
  - Cold sweat [Recovered/Resolved]
  - Drug effect decreased [Not Recovered/Not Resolved]
  - Diarrhoea [Recovered/Resolved]
  - Weight fluctuation [Recovered/Resolved]
  - Decreased appetite [Recovered/Resolved]
  - Hallucination [Recovered/Resolved]
  - Dehydration [Recovered/Resolved]
  - Pruritus [Recovered/Resolved]
  - Malaise [Recovered/Resolved]

NARRATIVE: CASE EVENT DATE: 2010
